FAERS Safety Report 23433530 (Version 1)
Quarter: 2024Q1

REPORT INFORMATION
  Report Type: Report from Study
  Country: IN (occurrence: IN)
  Receive Date: 20240123
  Receipt Date: 20240123
  Transmission Date: 20240409
  Serious: Yes (Death, Other)
  Sender: FDA-Public Use
  Company Number: IN-JNJFOC-20240140352

PATIENT

DRUGS (9)
  1. BEDAQUILINE [Suspect]
     Active Substance: BEDAQUILINE
     Indication: Tuberculosis
     Route: 048
  2. BEDAQUILINE [Suspect]
     Active Substance: BEDAQUILINE
     Route: 048
  3. CYCLOSERINE [Suspect]
     Active Substance: CYCLOSERINE
     Indication: Tuberculosis
     Route: 065
  4. LINEZOLID [Suspect]
     Active Substance: LINEZOLID
     Indication: Tuberculosis
     Route: 065
  5. KANAMYCIN [Suspect]
     Active Substance: KANAMYCIN A SULFATE
     Indication: Tuberculosis
     Route: 065
  6. ETHIONAMIDE [Suspect]
     Active Substance: ETHIONAMIDE
     Indication: Tuberculosis
     Route: 065
  7. CLOFAZIMINE [Suspect]
     Active Substance: CLOFAZIMINE
     Indication: Tuberculosis
     Route: 065
  8. LEVOFLOXACIN [Suspect]
     Active Substance: LEVOFLOXACIN
     Indication: Tuberculosis
     Route: 065
  9. PYRAZINAMIDE [Suspect]
     Active Substance: PYRAZINAMIDE
     Indication: Tuberculosis
     Route: 065

REACTIONS (15)
  - Cardiac arrest [Fatal]
  - Completed suicide [Fatal]
  - Electrocardiogram QT prolonged [Unknown]
  - Suicidal ideation [Unknown]
  - Neuropathy peripheral [Unknown]
  - Deafness [Unknown]
  - Psychotic disorder [Unknown]
  - Treatment failure [Unknown]
  - Hepatic function abnormal [Unknown]
  - Nausea [Unknown]
  - Vomiting [Unknown]
  - Arthralgia [Unknown]
  - Depression [Unknown]
  - Vision blurred [Unknown]
  - Adverse event [Unknown]
